FAERS Safety Report 4867436-6 (Version None)
Quarter: 2005Q4

REPORT INFORMATION
  Report Type: 
  Country: None (occurrence: None)
  Receive Date: 20051228
  Receipt Date: 20050926
  Transmission Date: 20060501
  Serious: Yes (Hospitalization, Disabling)
  Sender: FDA-Public Use
  Company Number: US-MERCK-0509USA04150

PATIENT
  Age: 44 Year
  Sex: Female
  Weight: 81 kg

DRUGS (20)
  1. VIOXX [Suspect]
     Indication: OSTEOARTHRITIS
     Route: 048
     Dates: start: 20011023, end: 20030928
  2. LORAZEPAM [Concomitant]
     Route: 065
  3. ACCUPRIL [Concomitant]
     Indication: HYPERTENSION
     Route: 065
     Dates: start: 19990828, end: 20031104
  4. ALLEGRA [Concomitant]
     Route: 065
  5. PREMARIN [Concomitant]
     Route: 065
     Dates: start: 20001016
  6. CEPHALEXIN [Concomitant]
     Route: 065
  7. ZOCOR [Concomitant]
     Indication: BLOOD CHOLESTEROL INCREASED
     Route: 065
     Dates: start: 20020124, end: 20050416
  8. FORADIL [Concomitant]
     Route: 065
  9. NORVASC [Concomitant]
     Indication: CARDIAC DISORDER
     Route: 065
     Dates: start: 20020827
  10. CELEXA [Concomitant]
     Route: 065
  11. [THERAPY UNSPECIFIED] [Concomitant]
     Route: 065
  12. IBUPROFEN [Concomitant]
     Route: 065
  13. AZITHROMYCIN [Concomitant]
     Route: 065
  14. QUININE SULFATE [Concomitant]
     Route: 065
  15. GUIATUSS [Concomitant]
     Route: 065
  16. NABUMETONE [Concomitant]
     Route: 065
     Dates: start: 20030523, end: 20040401
  17. HYDROCODONE BITARTRATE [Concomitant]
     Route: 065
     Dates: start: 19990209
  18. ACETAMINOPHEN AND PROPOXYPHENE NAPSYLATE [Concomitant]
     Route: 065
     Dates: start: 19980122
  19. CYCLOBENZAPRINE HYDROCHLORIDE [Concomitant]
     Route: 065
     Dates: start: 20021126
  20. PREDNISONE [Concomitant]
     Route: 065
     Dates: start: 19990412, end: 20050405

REACTIONS (15)
  - ANXIETY [None]
  - ASTHMA [None]
  - BIPOLAR DISORDER [None]
  - BLOOD CHOLESTEROL INCREASED [None]
  - CARDIAC MURMUR [None]
  - CONSTIPATION [None]
  - CORONARY ARTERY DISEASE [None]
  - COUGH [None]
  - DEPRESSION [None]
  - GASTRIC DISORDER [None]
  - HYPERSENSITIVITY [None]
  - INFECTION [None]
  - MYOCARDIAL INFARCTION [None]
  - NAUSEA [None]
  - PEPTIC ULCER [None]
